FAERS Safety Report 9145523 (Version 1)
Quarter: 2013Q1

REPORT INFORMATION
  Report Type: Spontaneous
  Country: US (occurrence: None)
  Receive Date: 20130214
  Receipt Date: 20130214
  Transmission Date: 20140127
  Serious: Yes (Death)
  Sender: FDA-Public Use
  Company Number: 2013020073

PATIENT
  Age: 21 Year
  Sex: Male

DRUGS (8)
  1. CARISOPRODOL (CARISOPRODOL) [Suspect]
     Route: 048
  2. MEPROBAMATE (MEPROBAMATE) [Suspect]
     Route: 048
  3. COCAINE (BENZOYLMETHYLECGONINE) [Suspect]
     Route: 048
  4. OXYCODONE (OXYCODONE) [Suspect]
     Route: 048
  5. AMPHETAMINE [Suspect]
     Route: 048
  6. BENZODIAZEPINE [Suspect]
     Route: 048
  7. DIPHENHYDRAMINE [Suspect]
     Route: 048
  8. DIETARY SUPPLEMENT [Suspect]
     Route: 048

REACTIONS (2)
  - Cardiac arrest [None]
  - Respiratory arrest [None]
